FAERS Safety Report 16539453 (Version 1)
Quarter: 2019Q3

REPORT INFORMATION
  Report Type: Spontaneous
  Country: US (occurrence: US)
  Receive Date: 20190705
  Receipt Date: 20190705
  Transmission Date: 20191004
  Serious: Yes (Death)
  Sender: FDA-Public Use
  Company Number: None

PATIENT
  Age: 7 Year
  Sex: Male

DRUGS (14)
  1. NYSTATIN. [Concomitant]
     Active Substance: NYSTATIN
  2. VALIUM [Concomitant]
     Active Substance: DIAZEPAM
  3. CEREZYME [Concomitant]
     Active Substance: IMIGLUCERASE
  4. MOMETASONE [Concomitant]
     Active Substance: MOMETASONE
  5. TYLENOL [Concomitant]
     Active Substance: ACETAMINOPHEN
  6. POLY-VI-SOL [Concomitant]
     Active Substance: VITAMINS
  7. GLYCOPYRROL [Concomitant]
  8. FERROUS SULFATE. [Concomitant]
     Active Substance: FERROUS SULFATE
  9. CEREZYME [Suspect]
     Active Substance: IMIGLUCERASE
     Indication: GAUCHER^S DISEASE
     Dosage: ?          OTHER FREQUENCY:EVERY 14 DAYS;?
     Route: 042
  10. COLACE [Concomitant]
     Active Substance: DOCUSATE SODIUM
  11. KEPPRA [Concomitant]
     Active Substance: LEVETIRACETAM
  12. PEPCID [Concomitant]
     Active Substance: FAMOTIDINE
  13. BACLOFEN. [Concomitant]
     Active Substance: BACLOFEN
  14. CALCIUM [Concomitant]
     Active Substance: CALCIUM

REACTIONS (1)
  - Death [None]

NARRATIVE: CASE EVENT DATE: 20190701
